FAERS Safety Report 13894018 (Version 2)
Quarter: 2017Q3

REPORT INFORMATION
  Report Type: Report from Study
  Country: US (occurrence: US)
  Receive Date: 20170822
  Receipt Date: 20170929
  Transmission Date: 20171127
  Serious: No
  Sender: FDA-Public Use
  Company Number: PHHY2017US122461

PATIENT
  Age: 55 Year
  Sex: Female

DRUGS (1)
  1. GILENYA [Suspect]
     Active Substance: FINGOLIMOD HYDROCHLORIDE
     Indication: MULTIPLE SCLEROSIS
     Dosage: UNK, QD
     Route: 048

REACTIONS (9)
  - Exostosis [Unknown]
  - Photosensitivity reaction [Unknown]
  - White blood cell count decreased [Unknown]
  - Bronchitis [Recovered/Resolved]
  - Intervertebral disc disorder [Unknown]
  - Bone pain [Unknown]
  - Headache [Unknown]
  - Cough [Recovered/Resolved]
  - Dry eye [Unknown]

NARRATIVE: CASE EVENT DATE: 20150821
